FAERS Safety Report 8547894-6 (Version None)
Quarter: 2012Q3

REPORT INFORMATION
  Report Type: 
  Country: None (occurrence: None)
  Receive Date: 20120728
  Receipt Date: 20110208
  Transmission Date: 20120928
  Serious: Yes (Other)
  Sender: FDA-Public Use
  Company Number: US-BAYER-201036402NA

PATIENT
  Age: 35 Year
  Sex: Female
  Weight: 72.562 kg

DRUGS (1)
  1. MIRENA [Suspect]
     Indication: CONTRACEPTION
     Dosage: FREQUENCY: CONTINUOUS
     Route: 015
     Dates: start: 20091124, end: 20101007

REACTIONS (1)
  - DEVICE DISLOCATION [None]
